FAERS Safety Report 4298775-8 (Version None)
Quarter: 2004Q1

REPORT INFORMATION
  Report Type: 
  Country: None (occurrence: None)
  Receive Date: 20040126
  Receipt Date: 20030911
  Transmission Date: 20041129
  Serious: No
  Sender: FDA-Public Use
  Company Number: USA030946997

PATIENT
  Age: 9 Year
  Sex: Male
  Weight: 41 kg

DRUGS (4)
  1. STRATTERA [Suspect]
     Indication: ATTENTION DEFICIT/HYPERACTIVITY DISORDER
     Dosage: 20 MG/IN THE EVENING
     Dates: start: 20030728
  2. STRATTERA [Suspect]
     Indication: SLEEP DISORDER
     Dosage: 20 MG/IN THE EVENING
     Dates: start: 20030728
  3. ALLEGRA [Concomitant]
  4. RHINOCORT [Concomitant]

REACTIONS (3)
  - DYSURIA [None]
  - POLLAKIURIA [None]
  - SINUSITIS [None]
